FAERS Safety Report 9897648 (Version 3)
Quarter: 2014Q1

REPORT INFORMATION
  Report Type: Spontaneous
  Country: BE (occurrence: BE)
  Receive Date: 20140214
  Receipt Date: 20140324
  Transmission Date: 20141002
  Serious: Yes (Other)
  Sender: FDA-Public Use
  Company Number: BE-BEH-2013037483

PATIENT
  Age: 13 Year
  Sex: Male

DRUGS (5)
  1. HIZENTRA [Suspect]
     Dosage: FREQUENCY: WEEKLY ON FRIDAY
     Route: 058
     Dates: start: 20121129
  2. HIZENTRA [Suspect]
     Dosage: FREQUENCY: WEEKLY ON FRIDAY
     Route: 058
     Dates: start: 20121129
  3. HIZENTRA [Suspect]
     Indication: SELECTIVE IGG SUBCLASS DEFICIENCY
     Dosage: FREQUENCY: WEEKLY ON FRIDAY
     Route: 058
     Dates: start: 20121129
  4. HIZENTRA [Suspect]
     Dosage: FREQUENCY: WEEKLY ON FRIDAY
     Route: 058
     Dates: start: 20121129
  5. HIZENTRA [Suspect]
     Dosage: FREQUENCY: WEEKLY ON FRIDAY
     Route: 058
     Dates: start: 20121129

REACTIONS (6)
  - Growth retardation [Not Recovered/Not Resolved]
  - Delayed puberty [Not Recovered/Not Resolved]
  - Injection site pain [Recovered/Resolved]
  - Injection site swelling [Recovered/Resolved]
  - Injection site reaction [Recovered/Resolved]
  - Infusion site erythema [Recovered/Resolved]
